FAERS Safety Report 14560582 (Version 2)
Quarter: 2018Q1

REPORT INFORMATION
  Report Type: Report from Study
  Country: CA (occurrence: CA)
  Receive Date: 20180222
  Receipt Date: 20180309
  Transmission Date: 20180509
  Serious: Yes (Other)
  Sender: FDA-Public Use
  Company Number: CA-AMGEN-CANSL2018022188

PATIENT
  Age: 58 Year
  Sex: Female

DRUGS (2)
  1. ELTROXIN [Concomitant]
     Active Substance: LEVOTHYROXINE
     Indication: THYROID DISORDER
     Dosage: UNK
  2. ENBREL [Suspect]
     Active Substance: ETANERCEPT
     Indication: RHEUMATOID ARTHRITIS
     Dosage: 50 MG, QWK
     Route: 065
     Dates: start: 20161227

REACTIONS (6)
  - Rheumatoid arthritis [Unknown]
  - Weight decreased [Unknown]
  - Sensation of foreign body [Unknown]
  - Diarrhoea [Unknown]
  - Cough [Unknown]
  - Dysphagia [Unknown]
